FAERS Safety Report 7762930-2 (Version None)
Quarter: 2011Q3

REPORT INFORMATION
  Report Type: 
  Country: None (occurrence: None)
  Receive Date: 20110920
  Receipt Date: 20110912
  Transmission Date: 20111222
  Serious: Yes (Other)
  Sender: FDA-Public Use
  Company Number: PHHY2011AU81730

PATIENT

DRUGS (5)
  1. FLUOROURACIL [Suspect]
     Dosage: 225 MG/M2, DAILY
  2. OXYCODONE HCL [Concomitant]
     Indication: BACK PAIN
  3. RADIOTHERAPY [Concomitant]
     Dosage: 45 GY, UNK
  4. SIMVASTATIN [Concomitant]
     Indication: DYSLIPIDAEMIA
  5. CITALOPRAM HYDROBROMIDE [Suspect]
     Indication: DEPRESSION

REACTIONS (7)
  - CREPITATIONS [None]
  - HAEMOGLOBIN DECREASED [None]
  - ELECTROCARDIOGRAM ST SEGMENT ELEVATION [None]
  - FATIGUE [None]
  - SINUS BRADYCARDIA [None]
  - WHITE BLOOD CELL COUNT INCREASED [None]
  - DIZZINESS [None]
